FAERS Safety Report 4582455-5 (Version None)
Quarter: 2005Q1

REPORT INFORMATION
  Report Type: 
  Country: None (occurrence: None)
  Receive Date: 20050215
  Receipt Date: 20040920
  Transmission Date: 20050727
  Serious: Yes (Hospitalization)
  Sender: FDA-Public Use
  Company Number: DE-ABBOTT-04P-062-0274110-00

PATIENT
  Sex: Female
  Weight: 58 kg

DRUGS (15)
  1. HUMIRA [Suspect]
     Indication: RHEUMATOID ARTHRITIS
     Route: 058
     Dates: start: 20040528, end: 20040609
  2. METHOTREXATE [Suspect]
     Indication: RHEUMATOID ARTHRITIS
     Dosage: METEX LOSUNG
     Route: 048
     Dates: start: 20031205, end: 20040709
  3. METHOTREXATE [Suspect]
     Dosage: LANTAREL FS
     Route: 050
     Dates: start: 20040907
  4. METHOTREXATE [Suspect]
     Dosage: HEXAL TABLETS
     Route: 048
     Dates: start: 19920101, end: 20031204
  5. IBUPROFEN [Concomitant]
     Indication: RHEUMATOID ARTHRITIS
     Route: 048
     Dates: start: 20030901
  6. CLOPREDNOL [Concomitant]
     Indication: RHEUMATOID ARTHRITIS
     Route: 048
  7. VIGANTOLETTEN [Concomitant]
     Indication: OSTEOPOROSIS
     Route: 048
  8. FOLIC ACID [Concomitant]
     Indication: VITAMIN SUPPLEMENTATION
     Route: 048
  9. TELMISARTAN [Concomitant]
     Indication: HYPERTENSION
     Route: 048
  10. PROPRANOLOL HYDROCHLORIDE [Concomitant]
     Indication: HYPERTENSION
     Route: 048
  11. CORINFAX UNO [Concomitant]
     Indication: HYPERTENSION
     Route: 048
  12. HCT [Concomitant]
     Indication: HYPERTENSION
     Route: 048
  13. RISEDRONATE SODIUM [Concomitant]
     Indication: OSTEOPOROSIS
     Route: 048
  14. ENOXAPARIN SODIUM [Concomitant]
     Indication: THROMBOSIS PROPHYLAXIS
     Route: 058
     Dates: start: 20040709
  15. CLINDAMYCIN HCL [Concomitant]
     Indication: OSTEOMYELITIS
     Route: 048
     Dates: start: 20040709

REACTIONS (6)
  - DIARRHOEA [None]
  - DRUG ERUPTION [None]
  - FISTULA [None]
  - INFECTION [None]
  - OSTEOMYELITIS ACUTE [None]
  - SEPSIS [None]
